FAERS Safety Report 23864474 (Version 1)
Quarter: 2024Q2

REPORT INFORMATION
  Report Type: Spontaneous
  Country: US (occurrence: US)
  Receive Date: 20240516
  Receipt Date: 20240516
  Transmission Date: 20240715
  Serious: No
  Sender: FDA-Public Use
  Company Number: US-SA-SAC20240510000287

PATIENT
  Age: 63 Year
  Sex: Male

DRUGS (1)
  1. DUPIXENT [Suspect]
     Active Substance: DUPILUMAB
     Indication: Dyshidrotic eczema
     Dosage: DOSE OR AMOUNT: 300MG FREQUENCY: EVERY 2 WEEKS
     Route: 058

REACTIONS (3)
  - Ocular hyperaemia [Unknown]
  - Pruritus [Unknown]
  - Product use in unapproved indication [Unknown]
